FAERS Safety Report 18704712 (Version 2)
Quarter: 2021Q1

REPORT INFORMATION
  Report Type: Report from Study
  Country: None (occurrence: US)
  Receive Date: 20210105
  Receipt Date: 20210108
  Transmission Date: 20210419
  Serious: Yes (Death)
  Sender: FDA-Public Use
  Company Number: US-ABBVIE-21K-163-3717193-00

PATIENT
  Age: 74 Year
  Sex: Female
  Weight: 72.64 kg

DRUGS (2)
  1. DUOPA [Suspect]
     Active Substance: CARBIDOPA\LEVODOPA
  2. DUOPA [Suspect]
     Active Substance: CARBIDOPA\LEVODOPA
     Indication: PARKINSON^S DISEASE
     Dosage: STRENGTH: 4.63 MG/ML 20 MG/ML
     Route: 050
     Dates: start: 20180709, end: 202012

REACTIONS (4)
  - Parkinson^s disease [Fatal]
  - COVID-19 [Fatal]
  - Device kink [Unknown]
  - Renal failure [Fatal]

NARRATIVE: CASE EVENT DATE: 202012
